FAERS Safety Report 5716865-7 (Version None)
Quarter: 2008Q2

REPORT INFORMATION
  Report Type: 
  Country: None (occurrence: None)
  Receive Date: 20080422
  Receipt Date: 20080411
  Transmission Date: 20081010
  Serious: Yes (Death, Other)
  Sender: FDA-Public Use
  Company Number: 2008JP001880

PATIENT
  Age: 50 Year
  Sex: Male

DRUGS (4)
  1. TACROLIMUS [Suspect]
     Indication: LIVER TRANSPLANT
  2. METHYLPREDNISOLONE [Concomitant]
  3. DACLIZUMAB (DACLIZUMAB) [Concomitant]
  4. NEUPOGEN [Concomitant]

REACTIONS (9)
  - APLASTIC ANAEMIA [None]
  - GRAFT VERSUS HOST DISEASE [None]
  - INTESTINAL OBSTRUCTION [None]
  - MOUTH ULCERATION [None]
  - MULTI-ORGAN FAILURE [None]
  - PHARYNGOLARYNGEAL PAIN [None]
  - RASH MACULO-PAPULAR [None]
  - SEPSIS [None]
  - UPPER GASTROINTESTINAL HAEMORRHAGE [None]
